FAERS Safety Report 20190090 (Version 2)
Quarter: 2021Q4

REPORT INFORMATION
  Report Type: Spontaneous
  Country: SE (occurrence: SE)
  Receive Date: 20211215
  Receipt Date: 20211229
  Transmission Date: 20220303
  Serious: Yes (Disabling)
  Sender: FDA-Public Use
  Company Number: None

PATIENT
  Age: 30 Year
  Sex: Female
  Weight: 58 kg

DRUGS (2)
  1. CYTOTEC [Suspect]
     Active Substance: MISOPROSTOL
     Indication: Abortion
     Dosage: 0.8 MG, SINGLE
     Route: 067
     Dates: start: 20211006, end: 20211006
  2. CYTOTEC [Suspect]
     Active Substance: MISOPROSTOL
     Dosage: 0.6 MG, SINGLE
     Route: 060
     Dates: start: 20211006, end: 20211006

REACTIONS (5)
  - Cardiac failure [Recovering/Resolving]
  - Myocardial infarction [Recovering/Resolving]
  - Off label use [Unknown]
  - Product use issue [Unknown]
  - Off label use [Unknown]

NARRATIVE: CASE EVENT DATE: 20211006
